FAERS Safety Report 6527401-X (Version None)
Quarter: 2010Q1

REPORT INFORMATION
  Report Type: 
  Country: None (occurrence: None)
  Receive Date: 20100105
  Receipt Date: 20091223
  Transmission Date: 20100710
  Serious: Yes (Hospitalization, Other)
  Sender: FDA-Public Use
  Company Number: MY-PFIZER INC-2006152774

PATIENT
  Sex: Male
  Weight: 73 kg

DRUGS (4)
  1. SUNITINIB MALATE [Suspect]
     Indication: METASTATIC RENAL CELL CARCINOMA
     Dosage: 50 MG, 1X/DAY
     Route: 048
     Dates: start: 20061113
  2. NORVASC [Concomitant]
     Route: 048
     Dates: start: 19970101
  3. HYDROCORTISONE [Concomitant]
     Dates: start: 20050901
  4. FLUDROCORTISONE [Concomitant]
     Dates: start: 20050901

REACTIONS (2)
  - MELAENA [None]
  - OESOPHAGITIS [None]
